FAERS Safety Report 26030698 (Version 1)
Quarter: 2025Q4

REPORT INFORMATION
  Report Type: Report from Study
  Country: US (occurrence: US)
  Receive Date: 20251112
  Receipt Date: 20251112
  Transmission Date: 20260118
  Serious: Yes (Death)
  Sender: CSL BEHRING
  Company Number: US-BEH-2025224716

PATIENT
  Age: 43 Year
  Sex: Female
  Weight: 113.83 kg

DRUGS (2)
  1. BERINERT [Suspect]
     Active Substance: HUMAN C1-ESTERASE INHIBITOR
     Indication: Hereditary angioedema
     Dosage: 3200 IU/KG, BIW
     Route: 058
  2. BERINERT [Suspect]
     Active Substance: HUMAN C1-ESTERASE INHIBITOR
     Indication: Prophylaxis

REACTIONS (1)
  - Death [Fatal]

NARRATIVE: CASE EVENT DATE: 20251022
